FAERS Safety Report 4423248-9 (Version None)
Quarter: 2004Q3

REPORT INFORMATION
  Report Type: 
  Country: None (occurrence: None)
  Receive Date: 20040810
  Receipt Date: 20040810
  Transmission Date: 20050211
  Serious: Yes (Life-Threatening, Hospitalization)
  Sender: FDA-Public Use
  Company Number: None

PATIENT
  Age: 47 Year
  Sex: Female
  Weight: 79.8331 kg

DRUGS (5)
  1. PACLITAXEL [Suspect]
     Indication: OVARIAN CANCER
     Dosage: 2 MG INTRAVENOUS
     Route: 042
     Dates: start: 20040809, end: 20040809
  2. KYTRIL [Concomitant]
  3. TAGAMET [Concomitant]
  4. DECADRON [Concomitant]
  5. BENADRYL [Concomitant]

REACTIONS (3)
  - BLOOD PRESSURE IMMEASURABLE [None]
  - HEART RATE INCREASED [None]
  - PALLOR [None]
